FAERS Safety Report 4850329-8 (Version None)
Quarter: 2005Q4

REPORT INFORMATION
  Report Type: 
  Country: None (occurrence: None)
  Receive Date: 20051123
  Receipt Date: 20050815
  Transmission Date: 20060501
  Serious: No
  Sender: FDA-Public Use
  Company Number: 216923

PATIENT
  Age: 37 Year
  Sex: Female

DRUGS (1)
  1. RAPTIVA [Suspect]
     Indication: PSORIASIS
     Dosage: 0.5 ML, QD, SUBCUTANEOUS
     Route: 058
     Dates: start: 20040201

REACTIONS (1)
  - PRURITUS [None]
